FAERS Safety Report 8805858 (Version 1)
Quarter: 2012Q4

REPORT INFORMATION
  Report Type: Spontaneous
  Country: US (occurrence: None)
  Receive Date: 20120919
  Receipt Date: 20120919
  Transmission Date: 20130627
  Serious: Yes (Hospitalization, Other)
  Sender: FDA-Public Use
  Company Number: None

PATIENT
  Age: 72 Year
  Sex: Female
  Weight: 54.89 kg

DRUGS (1)
  1. TYSABRI [Suspect]
     Dosage: 500?in 500 NS q 4 weekw IV Drip
     Route: 041

REACTIONS (5)
  - Coma [None]
  - Respiratory arrest [None]
  - Bradycardia [None]
  - Drug ineffective [None]
  - Multiple sclerosis [None]
